FAERS Safety Report 6505700-5 (Version None)
Quarter: 2009Q4

REPORT INFORMATION
  Report Type: 
  Country: None (occurrence: None)
  Receive Date: 20091218
  Receipt Date: 20091215
  Transmission Date: 20100525
  Serious: Yes (Hospitalization)
  Sender: FDA-Public Use
  Company Number: B0613795A

PATIENT
  Sex: Male

DRUGS (1)
  1. ZANAMIVIR [Suspect]
     Indication: H1N1 INFLUENZA
     Dosage: 600MG TWICE PER DAY
     Route: 042
     Dates: start: 20091110, end: 20091114

REACTIONS (3)
  - CHOLECYSTITIS [None]
  - COLITIS [None]
  - LIVER FUNCTION TEST ABNORMAL [None]
